FAERS Safety Report 19195222 (Version 2)
Quarter: 2022Q2

REPORT INFORMATION
  Report Type: Spontaneous
  Country: CH (occurrence: CH)
  Receive Date: 20210429
  Receipt Date: 20220617
  Transmission Date: 20220721
  Serious: Yes (Hospitalization, Other)
  Sender: FDA-Public Use
  Company Number: None

PATIENT
  Age: 24 Year
  Sex: Female

DRUGS (39)
  1. TRILEPTAL [Interacting]
     Active Substance: OXCARBAZEPINE
     Indication: Product used for unknown indication
     Dosage: 450 MG, BID
     Route: 048
     Dates: start: 20210114, end: 20210408
  2. TRILEPTAL [Interacting]
     Active Substance: OXCARBAZEPINE
     Dosage: 300 MG, Q12H
     Route: 048
     Dates: start: 20210408, end: 20210411
  3. TRILEPTAL [Interacting]
     Active Substance: OXCARBAZEPINE
     Dosage: 150 MG, Q12H
     Route: 048
     Dates: start: 20210412, end: 20210414
  4. QUETIAPINE [Suspect]
     Active Substance: QUETIAPINE
     Indication: Product used for unknown indication
     Dosage: 5 MG, QD
     Route: 048
     Dates: start: 20210401, end: 20210408
  5. QUETIAPINE [Suspect]
     Active Substance: QUETIAPINE
     Dosage: UNK UNK, PRN
     Route: 048
     Dates: start: 20210401
  6. QUETIAPINE [Suspect]
     Active Substance: QUETIAPINE
     Dosage: 12.5 MG, QD
     Route: 048
     Dates: start: 20210409, end: 20210413
  7. LEVETIRACETAM [Suspect]
     Active Substance: LEVETIRACETAM
     Indication: Product used for unknown indication
     Dosage: 500 MG, BID
     Route: 048
     Dates: start: 20201230, end: 20210101
  8. LEVETIRACETAM [Suspect]
     Active Substance: LEVETIRACETAM
     Dosage: 500 MG, BID
     Route: 048
     Dates: start: 20210401, end: 20210412
  9. VIMPAT [Suspect]
     Active Substance: LACOSAMIDE
     Indication: Product used for unknown indication
     Dosage: 200 MG, BID
     Route: 048
     Dates: start: 20210101, end: 20210413
  10. VIMPAT [Suspect]
     Active Substance: LACOSAMIDE
     Dosage: 100 MG, BID
     Route: 048
     Dates: start: 20210413, end: 20210424
  11. VIMPAT [Suspect]
     Active Substance: LACOSAMIDE
     Dosage: 150 MG, BID
     Route: 048
     Dates: start: 20210424, end: 20210512
  12. VIMPAT [Suspect]
     Active Substance: LACOSAMIDE
     Dosage: 100 MG, BID
     Route: 048
     Dates: start: 20210512, end: 20210513
  13. VIMPAT [Suspect]
     Active Substance: LACOSAMIDE
     Dosage: 50 MG, BID
     Route: 048
     Dates: start: 20210514, end: 20210515
  14. DAFALGAN [Interacting]
     Active Substance: ACETAMINOPHEN
     Indication: Product used for unknown indication
     Dosage: 1000 MG, BID
     Route: 048
     Dates: start: 20210110, end: 20210126
  15. DAFALGAN [Interacting]
     Active Substance: ACETAMINOPHEN
     Dosage: 1000 MG, BID
     Route: 048
     Dates: start: 20210405, end: 20210408
  16. IBUPROFEN [Interacting]
     Active Substance: IBUPROFEN
     Indication: Product used for unknown indication
     Dosage: 400 MG, BID
     Route: 048
     Dates: start: 20210406, end: 20210409
  17. IBUPROFEN [Interacting]
     Active Substance: IBUPROFEN
     Dosage: 400 MG, Q8H
     Route: 048
     Dates: start: 20210417
  18. ENOXAPARIN SODIUM [Concomitant]
     Active Substance: ENOXAPARIN SODIUM
     Indication: Product used for unknown indication
     Dosage: UNK
     Route: 065
     Dates: start: 20210101
  19. PREDNISONE [Concomitant]
     Active Substance: PREDNISONE
     Indication: Product used for unknown indication
     Dosage: UNK
     Route: 065
     Dates: start: 20210112
  20. SODIUM PICOSULFATE [Concomitant]
     Active Substance: SODIUM PICOSULFATE
     Indication: Product used for unknown indication
     Dosage: UNK
     Route: 065
     Dates: start: 20210125
  21. ONDANSETRON [Concomitant]
     Active Substance: ONDANSETRON
     Indication: Product used for unknown indication
     Dosage: UNK, PRN (AS NECESARRY)
     Route: 065
     Dates: start: 20210317
  22. ASPIRIN [Concomitant]
     Active Substance: ASPIRIN
     Indication: Product used for unknown indication
     Dosage: UNK
     Route: 065
     Dates: start: 20201230, end: 20210108
  23. ATORVASTATIN [Concomitant]
     Active Substance: ATORVASTATIN
     Indication: Product used for unknown indication
     Dosage: UNK
     Route: 065
     Dates: start: 20201230, end: 20210107
  24. VALPROATE SODIUM [Concomitant]
     Active Substance: VALPROATE SODIUM
     Indication: Product used for unknown indication
     Dosage: UNK
     Route: 065
     Dates: start: 20210102, end: 20210111
  25. RIVOTRIL [Concomitant]
     Active Substance: CLONAZEPAM
     Indication: Product used for unknown indication
     Dosage: UNK
     Route: 065
     Dates: start: 20201231, end: 20210101
  26. CLOMETHIAZOLE [Concomitant]
     Active Substance: CLOMETHIAZOLE
     Indication: Product used for unknown indication
     Dosage: UNK
     Route: 065
     Dates: start: 20210107, end: 20210111
  27. PRIVIGEN [Concomitant]
     Active Substance: HUMAN IMMUNOGLOBULIN G
     Indication: Product used for unknown indication
     Dosage: UNK
     Route: 065
     Dates: start: 20210107, end: 20210111
  28. PRIVIGEN [Concomitant]
     Active Substance: HUMAN IMMUNOGLOBULIN G
     Dosage: UNK
     Route: 065
     Dates: start: 20210310, end: 20210314
  29. PRIVIGEN [Concomitant]
     Active Substance: HUMAN IMMUNOGLOBULIN G
     Dosage: UNK
     Route: 065
     Dates: start: 20210331, end: 20210404
  30. SOLU-MEDROL [Concomitant]
     Active Substance: METHYLPREDNISOLONE SODIUM SUCCINATE
     Indication: Product used for unknown indication
     Dosage: UNK
     Route: 065
     Dates: start: 20210107, end: 20210111
  31. NITROFURANTOIN [Concomitant]
     Active Substance: NITROFURANTOIN
     Indication: Product used for unknown indication
     Dosage: UNK
     Route: 065
     Dates: start: 20210108, end: 20210112
  32. RISPERDAL [Concomitant]
     Active Substance: RISPERIDONE
     Indication: Product used for unknown indication
     Dosage: UNK
     Route: 065
     Dates: start: 20210331, end: 20210331
  33. NEXIUM [Concomitant]
     Active Substance: ESOMEPRAZOLE MAGNESIUM
     Indication: Product used for unknown indication
     Dosage: UNK
     Route: 065
     Dates: start: 20210107, end: 20210409
  34. TEMESTA [Concomitant]
     Indication: Product used for unknown indication
     Dosage: UNK
     Route: 065
     Dates: start: 20210106, end: 20210112
  35. MOVICOL [Concomitant]
     Active Substance: POLYETHYLENE GLYCOL 3350\POTASSIUM CHLORIDE\SODIUM BICARBONATE\SODIUM CHLORIDE
     Indication: Product used for unknown indication
     Dosage: UNK
     Route: 065
     Dates: start: 20210202, end: 20210202
  36. MORPHINE [Concomitant]
     Active Substance: MORPHINE
     Indication: Product used for unknown indication
     Dosage: UNK
     Route: 065
     Dates: start: 20210410, end: 20210410
  37. RITUXIMAB [Concomitant]
     Active Substance: RITUXIMAB
     Indication: Product used for unknown indication
     Dosage: UNK
     Route: 065
     Dates: start: 20210122, end: 20210122
  38. FIG FRUIT OIL\SORBITOL [Concomitant]
     Active Substance: FIG FRUIT OIL\SORBITOL
     Indication: Product used for unknown indication
     Dosage: UNK
     Route: 065
     Dates: start: 20210318, end: 20210318
  39. FIG FRUIT OIL\SORBITOL [Concomitant]
     Active Substance: FIG FRUIT OIL\SORBITOL
     Dosage: UNK
     Route: 065
     Dates: start: 20210326, end: 20210327

REACTIONS (3)
  - Drug interaction [Recovered/Resolved]
  - Drug interaction [Recovered/Resolved]
  - Hepatocellular injury [Recovered/Resolved]

NARRATIVE: CASE EVENT DATE: 20210401
